FAERS Safety Report 7328062-2 (Version None)
Quarter: 2011Q1

REPORT INFORMATION
  Report Type: 
  Country: None (occurrence: None)
  Receive Date: 20110225
  Receipt Date: 20110225
  Transmission Date: 20110831
  Serious: Yes (Other)
  Sender: FDA-Public Use
  Company Number: None

PATIENT
  Age: 17 Year
  Sex: Female

DRUGS (3)
  1. MINOCYCLINE HCL [Concomitant]
  2. DROSPIRENONE/ETHINYL ESTRADIOL [Suspect]
     Indication: ACNE CYSTIC
     Dosage: 1 TAB DAILY
     Dates: start: 20100901
  3. DROSPIRENONE/ETHINYL ESTRADIOL [Suspect]
     Indication: MENSTRUAL CYCLE MANAGEMENT
     Dosage: 1 TAB DAILY
     Dates: start: 20100901

REACTIONS (4)
  - ACNE CYSTIC [None]
  - CONDITION AGGRAVATED [None]
  - PRODUCT SUBSTITUTION ISSUE [None]
  - BACTERIAL INFECTION [None]
